FAERS Safety Report 25208008 (Version 1)
Quarter: 2025Q2

REPORT INFORMATION
  Report Type: Other
  Country: US (occurrence: US)
  Receive Date: 20250417
  Receipt Date: 20250417
  Transmission Date: 20250717
  Serious: Yes (Life-Threatening, Hospitalization, Other)
  Sender: CREEKWOOD PHARMACEUTICALS
  Company Number: US-Creekwood Pharmaceuticals LLC-2175071

PATIENT
  Age: 36 Year
  Sex: Female

DRUGS (4)
  1. HYDROXYCHLOROQUINE SULFATE [Suspect]
     Active Substance: HYDROXYCHLOROQUINE SULFATE
     Indication: Product used for unknown indication
  2. ACETAMINOPHEN [Suspect]
     Active Substance: ACETAMINOPHEN
  3. ALCOHOL [Suspect]
     Active Substance: ALCOHOL
  4. SALICYLATE [Suspect]
     Active Substance: SALICYLIC ACID

REACTIONS (9)
  - Brain oedema [Recovered/Resolved]
  - Overdose [Unknown]
  - Hypotension [Unknown]
  - Cardiotoxicity [Unknown]
  - Electrocardiogram QRS complex prolonged [Unknown]
  - Tachycardia [Unknown]
  - Seizure [Unknown]
  - Toxicity to various agents [Recovered/Resolved]
  - Pulseless electrical activity [Unknown]
